FAERS Safety Report 25032711 (Version 1)
Quarter: 2025Q1

REPORT INFORMATION
  Report Type: Spontaneous
  Country: US (occurrence: US)
  Receive Date: 20250303
  Receipt Date: 20250303
  Transmission Date: 20250409
  Serious: No
  Sender: BAYER HEALTHCARE LLC
  Company Number: US-BAYER-2025A028722

PATIENT
  Sex: Female

DRUGS (14)
  1. ALEVE [Suspect]
     Active Substance: NAPROXEN SODIUM
     Indication: Rheumatoid arthritis
  2. ALBUTEROL [Concomitant]
     Active Substance: ALBUTEROL
  3. TYLENOL [Concomitant]
     Active Substance: ACETAMINOPHEN
  4. TEZSPIRE [Concomitant]
     Active Substance: TEZEPELUMAB-EKKO
  5. OMEPRAZOLE [Concomitant]
     Active Substance: OMEPRAZOLE
  6. LYSINE [Concomitant]
     Active Substance: LYSINE
  7. LOSARTAN [Concomitant]
     Active Substance: LOSARTAN
  8. SERTRALINE [Concomitant]
     Active Substance: SERTRALINE HYDROCHLORIDE
  9. BIOFREEZE [Concomitant]
     Active Substance: MENTHOL
  10. BUDESONIDE\FORMOTEROL [Concomitant]
     Active Substance: BUDESONIDE\FORMOTEROL
  11. FLUTICASONE PROPIONATE [Concomitant]
     Active Substance: FLUTICASONE PROPIONATE
  12. HYDROCHLOROTHIAZIDE [Concomitant]
     Active Substance: HYDROCHLOROTHIAZIDE
  13. AMLODIPINE [Concomitant]
     Active Substance: AMLODIPINE BESYLATE
  14. MAGNESIUM OXIDE [Concomitant]
     Active Substance: MAGNESIUM OXIDE

REACTIONS (2)
  - Dyspepsia [Unknown]
  - Ulcer [Unknown]
